FAERS Safety Report 8244088-9 (Version None)
Quarter: 2012Q1

REPORT INFORMATION
  Report Type: 
  Country: None (occurrence: None)
  Receive Date: 20120329
  Receipt Date: 20120323
  Transmission Date: 20120608
  Serious: Yes (Hospitalization, Other)
  Sender: FDA-Public Use
  Company Number: US-BRISTOL-MYERS SQUIBB COMPANY-16177917

PATIENT
  Age: 79 Year
  Sex: Female
  Weight: 82 kg

DRUGS (4)
  1. MULTI-VITAMINS [Concomitant]
  2. CRESTOR [Concomitant]
  3. NORVASC [Suspect]
  4. AVALIDE [Suspect]
     Indication: HYPERTENSION
     Dosage: 300/25 FOR 9 MONTHS. ALSO 300/12.5 PILLS. EXP DATE:08SEP12,8MAR13
     Route: 048
     Dates: start: 20110909

REACTIONS (4)
  - HYPERSENSITIVITY [None]
  - CHEST DISCOMFORT [None]
  - HYPERTENSION [None]
  - DRUG INEFFECTIVE [None]
